FAERS Safety Report 23457170 (Version 2)
Quarter: 2024Q1

REPORT INFORMATION
  Report Type: Spontaneous
  Country: JP (occurrence: JP)
  Receive Date: 20240130
  Receipt Date: 20240305
  Transmission Date: 20240410
  Serious: Yes (Death, Life-Threatening, Hospitalization)
  Sender: FDA-Public Use
  Company Number: JP-Eisai-202313229_LEN-RCC_P_1

PATIENT
  Sex: Female

DRUGS (4)
  1. LENVIMA [Suspect]
     Active Substance: LENVATINIB
     Indication: Renal cell carcinoma
     Route: 048
     Dates: start: 20221128, end: 202212
  2. LENVIMA [Suspect]
     Active Substance: LENVATINIB
     Route: 048
     Dates: start: 202212
  3. KEYTRUDA [Suspect]
     Active Substance: PEMBROLIZUMAB
     Indication: Renal cell carcinoma
     Route: 042
     Dates: start: 20221128
  4. AMLODIPINE [Concomitant]
     Active Substance: AMLODIPINE BESYLATE
     Indication: Blood pressure increased
     Route: 065
     Dates: start: 20221129

REACTIONS (4)
  - Cardiac failure [Fatal]
  - Pyrexia [Recovering/Resolving]
  - Malaise [Recovering/Resolving]
  - Thrombosis [Unknown]

NARRATIVE: CASE EVENT DATE: 20221201
